FAERS Safety Report 5738941-5 (Version None)
Quarter: 2008Q2

REPORT INFORMATION
  Report Type: 
  Country: None (occurrence: None)
  Receive Date: 20080515
  Receipt Date: 20080505
  Transmission Date: 20081010
  Serious: Yes (Hospitalization)
  Sender: FDA-Public Use
  Company Number: DK-JNJFOC-20080501030

PATIENT
  Sex: Female
  Weight: 55 kg

DRUGS (9)
  1. INVEGA [Suspect]
     Indication: SCHIZOPHRENIA, PARANOID TYPE
     Route: 048
  2. ANTABUSE [Concomitant]
     Indication: ALCOHOLISM
     Route: 048
  3. AERIUS [Concomitant]
     Indication: HYPERSENSITIVITY
     Route: 048
  4. SERDOLECT [Concomitant]
     Indication: SCHIZOPHRENIA
     Route: 048
  5. ZIPRASIDONE HCL [Concomitant]
     Indication: SCHIZOPHRENIA
     Route: 048
  6. ALOPAM [Concomitant]
     Indication: ANXIETY
     Route: 048
  7. EFFEXOR [Concomitant]
     Indication: DEPRESSION
     Route: 048
  8. TRUXAL [Concomitant]
     Indication: ANXIETY
     Route: 048
  9. CETIRIZIN [Concomitant]
     Indication: INSOMNIA
     Route: 065

REACTIONS (3)
  - ELECTROCARDIOGRAM QT PROLONGED [None]
  - GRAND MAL CONVULSION [None]
  - TACHYCARDIA [None]
